FAERS Safety Report 5721844-X (Version None)
Quarter: 2008Q2

REPORT INFORMATION
  Report Type: 
  Country: None (occurrence: None)
  Receive Date: 20080429
  Receipt Date: 20080425
  Transmission Date: 20081010
  Serious: Yes (Death)
  Sender: FDA-Public Use
  Company Number: CN-SANOFI-SYNTHELABO-A01200804494

PATIENT
  Age: 70 Year
  Sex: Male

DRUGS (3)
  1. ELOXATIN [Suspect]
     Indication: GASTRIC CANCER
     Dosage: 150 MG
     Route: 041
     Dates: start: 20080411, end: 20080411
  2. FOLINIC ACID [Concomitant]
     Indication: GASTRIC CANCER
     Dosage: 200 MG
     Route: 041
     Dates: start: 20080411, end: 20080411
  3. FLUOROURACIL [Concomitant]
     Indication: GASTRIC CANCER
     Dosage: (TOTAL DOSAGE FROM D1 TO D5 WAS 2.5G) 500 MG
     Route: 041
     Dates: start: 20080411

REACTIONS (1)
  - CEREBRAL INFARCTION [None]
